FAERS Safety Report 5809689-3 (Version None)
Quarter: 2008Q3

REPORT INFORMATION
  Report Type: 
  Country: None (occurrence: None)
  Receive Date: 20080711
  Receipt Date: 20080711
  Transmission Date: 20090109
  Serious: No
  Sender: FDA-Public Use
  Company Number: None

PATIENT
  Age: 57 Year
  Sex: Male
  Weight: 83 kg

DRUGS (1)
  1. VARENICLINE [Suspect]
     Indication: SMOKING CESSATION THERAPY
     Dosage: 1 MG BID PO
     Route: 048
     Dates: start: 20080619, end: 20080624

REACTIONS (6)
  - AGGRESSION [None]
  - AGITATION [None]
  - ANGER [None]
  - DEPRESSION [None]
  - FEELING ABNORMAL [None]
  - HALLUCINATION, TACTILE [None]
